FAERS Safety Report 10650124 (Version 1)
Quarter: 2014Q4

REPORT INFORMATION
  Report Type: Spontaneous
  Country: US (occurrence: US)
  Receive Date: 20141212
  Receipt Date: 20141212
  Transmission Date: 20150529
  Serious: No
  Sender: FDA-Public Use
  Company Number: US-GLAXOSMITHKLINE-US2014GSK033358

PATIENT
  Sex: Female

DRUGS (1)
  1. ALBIGLUTIDE SOLUTION FOR INJECTION [Suspect]
     Active Substance: ALBIGLUTIDE
     Indication: TYPE 2 DIABETES MELLITUS
     Dosage: 50 MG, WE
     Dates: start: 20140924

REACTIONS (2)
  - Blood glucose increased [Unknown]
  - Hunger [Unknown]
